FAERS Safety Report 8270500 (Version 25)
Quarter: 2015Q2

REPORT INFORMATION
  Report Type: Report from Study
  Country: DE (occurrence: DE)
  Receive Date: 20111201
  Receipt Date: 20150522
  Transmission Date: 20150821
  Serious: Yes (Death, Hospitalization)
  Sender: FDA-Public Use
  Company Number: DE-ROCHE-1009730

PATIENT
  Age: 54 Year
  Sex: Male
  Weight: 88 kg

DRUGS (14)
  1. VEMURAFENIB [Suspect]
     Active Substance: VEMURAFENIB
     Indication: MALIGNANT MELANOMA
     Dosage: LAST DOSE PRIOR TO SAE 20 NOV 2011
     Route: 048
     Dates: start: 20111101, end: 20111127
  2. DEXAMETHASON [Concomitant]
     Active Substance: DEXAMETHASONE
     Route: 065
     Dates: start: 20111026, end: 20111121
  3. ZOPICLON [Concomitant]
     Active Substance: ZOPICLONE
     Route: 065
     Dates: start: 20111025
  4. CERTOPARIN [Concomitant]
     Dosage: 3000 / UI
     Route: 065
     Dates: start: 20111125
  5. OLANZAPIN [Concomitant]
     Active Substance: OLANZAPINE
     Route: 065
     Dates: start: 20111122
  6. ONDANSETRON [Concomitant]
     Active Substance: ONDANSETRON
     Route: 065
     Dates: start: 20111121, end: 20111124
  7. METAMIZOL [Concomitant]
     Active Substance: METAMIZOLE SODIUM
     Route: 065
     Dates: start: 20111017, end: 20111124
  8. PANTOPRAZOLE SODIUM. [Concomitant]
     Active Substance: PANTOPRAZOLE SODIUM
     Route: 065
     Dates: start: 20111027
  9. FENTANYL. [Concomitant]
     Active Substance: FENTANYL
     Dosage: 12 UG/H/L/L
     Route: 065
     Dates: start: 20111017, end: 20111121
  10. FENTANYL. [Concomitant]
     Active Substance: FENTANYL
     Dosage: 25 UG/H/L/L
     Route: 065
     Dates: start: 20111121
  11. IBUPROFEN. [Concomitant]
     Active Substance: IBUPROFEN
     Route: 065
     Dates: start: 20111027, end: 20111122
  12. FENTANYL. [Concomitant]
     Active Substance: FENTANYL
     Route: 060
     Dates: start: 20111122
  13. RESTEX [Concomitant]
     Active Substance: BENSERAZIDE
     Dosage: 100/25 MG
     Route: 065
     Dates: start: 20111025
  14. PARACETAMOL [Concomitant]
     Active Substance: ACETAMINOPHEN
     Route: 065
     Dates: start: 20111125, end: 20111130

REACTIONS (1)
  - Hydrocephalus [Fatal]

NARRATIVE: CASE EVENT DATE: 20111120
